FAERS Safety Report 17755993 (Version 2)
Quarter: 2021Q2

REPORT INFORMATION
  Report Type: Spontaneous
  Country: GB (occurrence: GB)
  Receive Date: 20200507
  Receipt Date: 20210408
  Transmission Date: 20210716
  Serious: Yes (Other)
  Sender: FDA-Public Use
  Company Number: GB-TORRENT-00023521

PATIENT
  Age: 11 Year
  Sex: Male

DRUGS (2)
  1. DESMOPRESSIN ACETATE. [Concomitant]
     Active Substance: DESMOPRESSIN ACETATE
     Indication: ENURESIS
     Dosage: UNKNOWN
     Dates: start: 2017
  2. TOLTERODINE [Suspect]
     Active Substance: TOLTERODINE
     Indication: ENURESIS
     Route: 048
     Dates: start: 2018, end: 20200323

REACTIONS (5)
  - Disturbance in social behaviour [Recovered/Resolved with Sequelae]
  - Depressed mood [Recovered/Resolved with Sequelae]
  - Personality change [Recovered/Resolved with Sequelae]
  - Crying [Recovered/Resolved with Sequelae]
  - Emotional disorder [Recovered/Resolved with Sequelae]

NARRATIVE: CASE EVENT DATE: 2018
